FAERS Safety Report 13783206 (Version 2)
Quarter: 2017Q3

REPORT INFORMATION
  Report Type: Spontaneous
  Country: CA (occurrence: CA)
  Receive Date: 20170724
  Receipt Date: 20170825
  Transmission Date: 20171127
  Serious: Yes (Life-Threatening, Hospitalization, Other)
  Sender: FDA-Public Use
  Company Number: CA-BAYER-2017-138163

PATIENT
  Age: 38 Year
  Sex: Female

DRUGS (1)
  1. MIRENA [Suspect]
     Active Substance: LEVONORGESTREL
     Dosage: 20 MCG/24HR, CONT
     Route: 015
     Dates: start: 20170705, end: 20170706

REACTIONS (10)
  - Tachycardia [Recovered/Resolved]
  - Pyrexia [Recovering/Resolving]
  - Pelvic pain [Recovering/Resolving]
  - Pelvic infection [Recovering/Resolving]
  - Blood pressure decreased [Recovered/Resolved]
  - Urine output decreased [Recovered/Resolved]
  - Sepsis [Recovered/Resolved]
  - Pelvic abscess [Recovering/Resolving]
  - Septic shock [Recovered/Resolved]
  - Acute kidney injury [Recovered/Resolved]

NARRATIVE: CASE EVENT DATE: 20170706
